FAERS Safety Report 6810032-1 (Version None)
Quarter: 2010Q2

REPORT INFORMATION
  Report Type: 
  Country: None (occurrence: None)
  Receive Date: 20100630
  Receipt Date: 20100621
  Transmission Date: 20101027
  Serious: Yes (Other)
  Sender: FDA-Public Use
  Company Number: B0662901A

PATIENT
  Sex: Female

DRUGS (1)
  1. SEREUPIN [Suspect]
     Indication: DEPRESSION
     Route: 065

REACTIONS (3)
  - ABNORMAL BEHAVIOUR [None]
  - AGGRESSION [None]
  - COMPULSIVE SHOPPING [None]
